FAERS Safety Report 19431143 (Version 1)
Quarter: 2021Q2

REPORT INFORMATION
  Report Type: Spontaneous
  Country: US (occurrence: US)
  Receive Date: 20210618
  Receipt Date: 20210618
  Transmission Date: 20210717
  Serious: No
  Sender: FDA-Public Use
  Company Number: US-ROCHE-2767640

PATIENT
  Sex: Female

DRUGS (12)
  1. LOSARTAN POTASSIUM. [Concomitant]
     Active Substance: LOSARTAN POTASSIUM
     Dosage: 50?12.5 M
  2. ACTEMRA [Suspect]
     Active Substance: TOCILIZUMAB
  3. METOPROLOL. [Concomitant]
     Active Substance: METOPROLOL
  4. ACTEMRA [Suspect]
     Active Substance: TOCILIZUMAB
     Indication: RHEUMATOID ARTHRITIS
     Dosage: 162 MG 0.9 ML
     Route: 058
  5. TRAZODONE HYDROCHLORIDE. [Concomitant]
     Active Substance: TRAZODONE HYDROCHLORIDE
  6. LEVOTHYROXINE. [Concomitant]
     Active Substance: LEVOTHYROXINE
     Dosage: 50 MCG
  7. ACTEMRA [Suspect]
     Active Substance: TOCILIZUMAB
  8. ASPRIN [Concomitant]
     Active Substance: ASPIRIN
  9. CELEBREX [Concomitant]
     Active Substance: CELECOXIB
  10. VITAMIN B12 [Concomitant]
     Active Substance: CYANOCOBALAMIN
  11. LYRICA [Concomitant]
     Active Substance: PREGABALIN
  12. METFORMIN HCL [Concomitant]
     Active Substance: METFORMIN HYDROCHLORIDE

REACTIONS (1)
  - COVID-19 [Unknown]
